FAERS Safety Report 5723249-4 (Version None)
Quarter: 2008Q2

REPORT INFORMATION
  Report Type: 
  Country: None (occurrence: None)
  Receive Date: 20080430
  Receipt Date: 20080314
  Transmission Date: 20081010
  Serious: No
  Sender: FDA-Public Use
  Company Number: US-ASTRAZENECA-2008UW04161

PATIENT
  Age: 28791 Day
  Sex: Female
  Weight: 65.3 kg

DRUGS (10)
  1. NEXIUM [Suspect]
     Indication: GASTROOESOPHAGEAL REFLUX DISEASE
     Route: 048
     Dates: start: 20080226
  2. NEXIUM [Suspect]
     Route: 048
     Dates: start: 20080312
  3. HYPERTENSION MEDICINE [Concomitant]
  4. COUMADIN [Concomitant]
  5. INSPRA [Concomitant]
  6. LISINOPRIL [Concomitant]
  7. NORVASC [Concomitant]
  8. VYTORIN [Concomitant]
  9. ALLOPURINOL [Concomitant]
  10. AMBIEN [Concomitant]

REACTIONS (7)
  - ABDOMINAL PAIN [None]
  - BALANCE DISORDER [None]
  - DIZZINESS [None]
  - FLATULENCE [None]
  - HEADACHE [None]
  - NAUSEA [None]
  - VERTIGO [None]
